FAERS Safety Report 14226212 (Version 1)
Quarter: 2017Q4

REPORT INFORMATION
  Report Type: Report from Study
  Country: TW (occurrence: TW)
  Receive Date: 20171127
  Receipt Date: 20171127
  Transmission Date: 20180321
  Serious: Yes (Hospitalization, Other)
  Sender: FDA-Public Use
  Company Number: TW-ROCHE-2029696

PATIENT

DRUGS (3)
  1. PEG-INTERFERON ALFA 2A [Suspect]
     Active Substance: PEGINTERFERON ALFA-2A
     Indication: CHRONIC HEPATITIS C
     Route: 058
  2. PEGINTERFERON ALFA-2B [Suspect]
     Active Substance: PEGINTERFERON ALFA-2B
     Indication: CHRONIC HEPATITIS C
     Route: 058
  3. RIBAVIRIN. [Suspect]
     Active Substance: RIBAVIRIN
     Indication: CHRONIC HEPATITIS C
     Route: 065

REACTIONS (23)
  - Depression [Unknown]
  - Pyrexia [Unknown]
  - Myalgia [Unknown]
  - White blood cell count decreased [Unknown]
  - Anaemia [Unknown]
  - Rash [Unknown]
  - Vomiting [Unknown]
  - Diarrhoea [Unknown]
  - Headache [Unknown]
  - Injection site reaction [Unknown]
  - Urinary tract infection [Unknown]
  - Platelet count decreased [Unknown]
  - Pruritus [Unknown]
  - Anxiety [Unknown]
  - Haemolysis [Unknown]
  - Haemolytic anaemia [Unknown]
  - Haematuria [Unknown]
  - Chills [Unknown]
  - Dizziness [Unknown]
  - Decreased appetite [Unknown]
  - Insomnia [Unknown]
  - Alopecia [Unknown]
  - Nausea [Unknown]
